FAERS Safety Report 6903336-5 (Version None)
Quarter: 2010Q3

REPORT INFORMATION
  Report Type: 
  Country: None (occurrence: None)
  Receive Date: 20100803
  Receipt Date: 20081029
  Transmission Date: 20110219
  Serious: Yes (Other)
  Sender: FDA-Public Use
  Company Number: US-PFIZER INC-2008080810

PATIENT
  Sex: Female

DRUGS (2)
  1. LYRICA [Suspect]
  2. WARFARIN SODIUM [Concomitant]

REACTIONS (4)
  - ARTHRITIS [None]
  - ATAXIA [None]
  - FALL [None]
  - HEAD INJURY [None]
